FAERS Safety Report 12916208 (Version 1)
Quarter: 2016Q4

REPORT INFORMATION
  Report Type: Spontaneous
  Country: US (occurrence: US)
  Receive Date: 20161107
  Receipt Date: 20161107
  Transmission Date: 20170207
  Serious: Yes (Death)
  Sender: FDA-Public Use
  Company Number: None

PATIENT
  Age: 64 Year
  Sex: Male
  Weight: 65.83 kg

DRUGS (4)
  1. ASPRIN [Concomitant]
     Active Substance: ASPIRIN
  2. BUMEX [Suspect]
     Active Substance: BUMETANIDE
     Indication: PAIN IN EXTREMITY
     Route: 048
     Dates: start: 20161003, end: 20161011
  3. BUMEX [Suspect]
     Active Substance: BUMETANIDE
     Indication: FLUID RETENTION
     Route: 048
     Dates: start: 20161003, end: 20161011
  4. HUMALOG [Concomitant]
     Active Substance: INSULIN LISPRO

REACTIONS (5)
  - Burns third degree [None]
  - Sudden death [None]
  - Infection [None]
  - Fluid retention [None]
  - Burning sensation [None]

NARRATIVE: CASE EVENT DATE: 20160814
